FAERS Safety Report 8264876-2 (Version None)
Quarter: 2012Q2

REPORT INFORMATION
  Report Type: 
  Country: None (occurrence: None)
  Receive Date: 20120406
  Receipt Date: 20120326
  Transmission Date: 20120825
  Serious: Yes (Life-Threatening, Hospitalization, Other)
  Sender: FDA-Public Use
  Company Number: FR-ELI_LILLY_AND_COMPANY-FR201203007328

PATIENT
  Age: 59 Year
  Sex: Female

DRUGS (5)
  1. ATORVASTATIN [Concomitant]
  2. ZYPREXA [Suspect]
     Dosage: UNK
     Route: 048
     Dates: start: 20080301, end: 20120101
  3. POTASSIUM CHLORIDE [Concomitant]
  4. ASPIRIN [Concomitant]
  5. PERINDOPRIL ERBUMINE [Concomitant]

REACTIONS (10)
  - INAPPROPRIATE ANTIDIURETIC HORMONE SECRETION [None]
  - SYNCOPE [None]
  - EMPHYSEMA [None]
  - HYPERKALAEMIA [None]
  - HYPONATRAEMIA [None]
  - PNEUMOTHORAX [None]
  - HEART RATE INCREASED [None]
  - PNEUMONIA [None]
  - HYPOTENSION [None]
  - AMNESIA [None]
